FAERS Safety Report 4792432-7 (Version None)
Quarter: 2005Q4

REPORT INFORMATION
  Report Type: 
  Country: None (occurrence: None)
  Receive Date: 20051010
  Receipt Date: 20050113
  Transmission Date: 20060501
  Serious: No
  Sender: FDA-Public Use
  Company Number: US-GLAXOSMITHKLINE-A0540553A

PATIENT
  Age: 86 Year
  Sex: Female

DRUGS (6)
  1. LANOXIN [Suspect]
     Route: 048
  2. LIPITOR [Concomitant]
  3. WARFARIN [Concomitant]
  4. DILTIAZEM [Concomitant]
  5. SINGULAIR [Concomitant]
  6. LISINOPRIL [Concomitant]

REACTIONS (1)
  - CARDIOACTIVE DRUG LEVEL DECREASED [None]
